FAERS Safety Report 4608847-3 (Version None)
Quarter: 2005Q1

REPORT INFORMATION
  Report Type: 
  Country: None (occurrence: None)
  Receive Date: 20050315
  Receipt Date: 20050308
  Transmission Date: 20050727
  Serious: Yes (Hospitalization)
  Sender: FDA-Public Use
  Company Number: GB-GLAXOSMITHKLINE-B0374122A

PATIENT
  Age: 84 Year

DRUGS (6)
  1. PAROXETINE HCL [Suspect]
     Indication: DEPRESSION
     Dosage: 20MG UNKNOWN
     Route: 048
     Dates: start: 20050216, end: 20050224
  2. FUROSEMIDE [Concomitant]
     Indication: VENTRICULAR HYPERTROPHY
     Dosage: 40MG PER DAY
     Route: 048
  3. ARTHROTEC [Concomitant]
     Indication: ARTHRALGIA
     Route: 048
  4. LEVOTHYROXINE [Concomitant]
     Indication: HYPOTHYROIDISM
     Dosage: 75MCG PER DAY
     Route: 048
  5. ASPIRIN [Concomitant]
     Dosage: 75MG PER DAY
     Route: 048
  6. CO-PROXAMOL [Concomitant]
     Indication: ARTHRALGIA
     Dosage: 2UNIT THREE TIMES PER DAY
     Route: 048
     Dates: end: 20050224

REACTIONS (3)
  - BLOOD SODIUM DECREASED [None]
  - CONFUSIONAL STATE [None]
  - FALL [None]
